FAERS Safety Report 12182903 (Version 2)
Quarter: 2016Q1

REPORT INFORMATION
  Report Type: Report from Study
  Country: CN (occurrence: CN)
  Receive Date: 20160316
  Receipt Date: 20160330
  Transmission Date: 20160526
  Serious: Yes (Hospitalization)
  Sender: FDA-Public Use
  Company Number: CN-CELGENE-CHN-2016031243

PATIENT
  Age: 48 Year
  Sex: Male
  Weight: 76 kg

DRUGS (9)
  1. ACARBOSE. [Concomitant]
     Active Substance: ACARBOSE
     Indication: DIABETES MELLITUS
     Route: 048
  2. CC-5013 [Suspect]
     Active Substance: LENALIDOMIDE
     Indication: LYMPHOMA
     Route: 048
     Dates: start: 20151209, end: 20151229
  3. RITUXIMAB [Suspect]
     Active Substance: RITUXIMAB
     Indication: LYMPHOMA
     Route: 041
     Dates: start: 20151209, end: 20151230
  4. G-CSF [Concomitant]
     Active Substance: GRANULOCYTE COLONY-STIMULATING FACTOR NOS
     Indication: NEUTROPHIL COUNT DECREASED
     Route: 058
     Dates: start: 20160302, end: 20160304
  5. ACARBOSE. [Concomitant]
     Active Substance: ACARBOSE
     Route: 048
  6. INSULIN [Concomitant]
     Active Substance: INSULIN NOS
     Indication: DIABETES MELLITUS
     Route: 065
  7. CC-5013 [Suspect]
     Active Substance: LENALIDOMIDE
     Dosage: 150 MICROGRAM
     Route: 048
     Dates: start: 20160203, end: 20160223
  8. RITUXIMAB [Suspect]
     Active Substance: RITUXIMAB
     Route: 041
     Dates: start: 20160203, end: 20160203
  9. G-CSF [Concomitant]
     Active Substance: GRANULOCYTE COLONY-STIMULATING FACTOR NOS
     Indication: WHITE BLOOD CELL COUNT DECREASED

REACTIONS (1)
  - Acute lung injury [Not Recovered/Not Resolved]

NARRATIVE: CASE EVENT DATE: 20160304
